FAERS Safety Report 5771373-2 (Version None)
Quarter: 2008Q2

REPORT INFORMATION
  Report Type: 
  Country: None (occurrence: None)
  Receive Date: 20080610
  Receipt Date: 20080602
  Transmission Date: 20081010
  Serious: Yes (Other)
  Sender: FDA-Public Use
  Company Number: 163-20785-08060073

PATIENT
  Age: 53 Year
  Sex: Female

DRUGS (5)
  1. THALOMID [Suspect]
     Indication: SYSTEMIC LUPUS ERYTHEMATOSUS
     Dosage: ORAL
     Route: 048
     Dates: start: 20080324, end: 20080502
  2. PLAQUENIL [Concomitant]
  3. PROPRANOL (PROPRANOLOL) [Concomitant]
  4. ALDACTONE [Concomitant]
  5. PREVACIDE (LANSOPRAZOLE) [Concomitant]

REACTIONS (8)
  - ASPARTATE AMINOTRANSFERASE INCREASED [None]
  - BILIRUBIN CONJUGATED INCREASED [None]
  - BLOOD ALBUMIN INCREASED [None]
  - BLOOD ALKALINE PHOSPHATASE INCREASED [None]
  - BLOOD BILIRUBIN INCREASED [None]
  - CONDITION AGGRAVATED [None]
  - HEPATOTOXICITY [None]
  - PROTEIN TOTAL INCREASED [None]
